FAERS Safety Report 10789709 (Version 2)
Quarter: 2015Q1

REPORT INFORMATION
  Report Type: Spontaneous
  Country: US (occurrence: US)
  Receive Date: 20150212
  Receipt Date: 20150223
  Transmission Date: 20150721
  Serious: No
  Sender: FDA-Public Use
  Company Number: US-009507513-1502USA002173

PATIENT
  Age: 7 Year
  Sex: Female
  Weight: 29.93 kg

DRUGS (2)
  1. MIRALAX [Suspect]
     Active Substance: POLYETHYLENE GLYCOL 3350
     Indication: ENCOPRESIS
     Dosage: 8.5 G, QD
     Route: 048
     Dates: start: 2010
  2. MIRALAX [Suspect]
     Active Substance: POLYETHYLENE GLYCOL 3350
     Indication: CONSTIPATION
     Dosage: 8.5 G, QD
     Route: 048

REACTIONS (5)
  - Product use issue [Unknown]
  - Product odour abnormal [Unknown]
  - Product taste abnormal [Unknown]
  - Drug administered to patient of inappropriate age [Unknown]
  - Incorrect drug administration duration [Unknown]

NARRATIVE: CASE EVENT DATE: 20150202
